FAERS Safety Report 15807808 (Version 1)
Quarter: 2019Q1

REPORT INFORMATION
  Report Type: Report from Study
  Country: BR (occurrence: BR)
  Receive Date: 20190110
  Receipt Date: 20190110
  Transmission Date: 20190417
  Serious: Yes (Other)
  Sender: FDA-Public Use
  Company Number: BR-TEVA-2019-BR-997292

PATIENT
  Age: 25 Year
  Sex: Male

DRUGS (3)
  1. LITHIUM CARBONATE. [Suspect]
     Active Substance: LITHIUM CARBONATE
     Indication: BIPOLAR II DISORDER
  2. BUPROPION. [Suspect]
     Active Substance: BUPROPION
     Indication: BIPOLAR II DISORDER
     Route: 065
  3. LITHIUM CARBONATE. [Suspect]
     Active Substance: LITHIUM CARBONATE
     Indication: BIPOLAR I DISORDER
     Dosage: 300 MILLIGRAM DAILY;
     Route: 065

REACTIONS (1)
  - Visuospatial deficit [Unknown]
